FAERS Safety Report 16328407 (Version 1)
Quarter: 2019Q2

REPORT INFORMATION
  Report Type: Spontaneous
  Country: NL (occurrence: NL)
  Receive Date: 20190518
  Receipt Date: 20190518
  Transmission Date: 20190711
  Serious: Yes (Hospitalization)
  Sender: FDA-Public Use
  Company Number: NL-TEVA-2019-NL-1050015

PATIENT
  Age: 85 Year
  Sex: Female
  Weight: 85 kg

DRUGS (14)
  1. PRADAXA [Suspect]
     Active Substance: DABIGATRAN ETEXILATE MESYLATE
     Indication: ATRIAL FIBRILLATION
     Dosage: 2DD1
     Dates: start: 20140101, end: 20190424
  2. EUTHYROX 25 MICROG [Concomitant]
     Dosage: 1ST 2
  3. OMEPRAZOL 40 [Concomitant]
     Dosage: 1DD1
  4. FUROSEMIDE 40 [Concomitant]
     Dosage: 1DD2
  5. ALLOPURINOL 300 [Concomitant]
     Active Substance: ALLOPURINOL
     Dosage: 1ST 1
  6. DICLOFENAC MAAGSAPRESISTENTE TABLET, 50 MG (MILLIGRAM) [Suspect]
     Active Substance: DICLOFENAC SODIUM
     Indication: PAIN
     Dosage: 3 DD 1
     Route: 065
     Dates: start: 20180925, end: 20190419
  7. COLECALCIFEROL 5600 IE [Concomitant]
     Dosage: 1/WEEK 1
  8. FOSTER 100 [Concomitant]
     Dosage: 2-4X / DAY 2 DOSE
  9. AMIODARON 200 [Concomitant]
     Active Substance: AMIODARONE
     Dosage: 1DD1
  10. ALISKIREN 150 [Concomitant]
     Dosage: 1DD1
  11. ROPIRINOL MGA 2 MG [Concomitant]
     Dosage: 1DD1
  12. LORATADINE 10 MG [Concomitant]
     Active Substance: LORATADINE
     Dosage: 1DD1
  13. IPRATROPIUM [Concomitant]
     Active Substance: IPRATROPIUM
     Dosage: 4 TH 40 MICROGRAM
  14. BISOPROLOL [Concomitant]
     Active Substance: BISOPROLOL
     Dosage: 2.5 MG IN THE MORNING, 5 MG IN THE EVENING

REACTIONS (3)
  - Haematoma [Recovered/Resolved]
  - Haemoglobin decreased [Recovered/Resolved]
  - Rectal haemorrhage [Recovered/Resolved]

NARRATIVE: CASE EVENT DATE: 20190419
